FAERS Safety Report 24690944 (Version 1)
Quarter: 2024Q4

REPORT INFORMATION
  Report Type: Spontaneous
  Country: US (occurrence: US)
  Receive Date: 20241203
  Receipt Date: 20241203
  Transmission Date: 20250115
  Serious: No
  Sender: PAREXEL
  Company Number: US-NOVEN PHARMACEUTICALS, INC.-2024-NOV-US000981

PATIENT
  Sex: Female

DRUGS (1)
  1. ESTRADIOL [Suspect]
     Active Substance: ESTRADIOL
     Indication: Artificial menopause
     Dosage: 0.1 MG, UNK
     Route: 062

REACTIONS (6)
  - Adhesive tape use [Recovered/Resolved]
  - Wrong technique in product usage process [Recovered/Resolved]
  - Product administration error [Recovered/Resolved]
  - Product adhesion issue [Recovered/Resolved]
  - Device issue [Recovered/Resolved]
  - No adverse event [Unknown]
